FAERS Safety Report 9208150 (Version 1)
Quarter: 2013Q2

REPORT INFORMATION
  Report Type: Spontaneous
  Country: DE (occurrence: DE)
  Receive Date: 20130403
  Receipt Date: 20130403
  Transmission Date: 20140414
  Serious: Yes (Other)
  Sender: FDA-Public Use
  Company Number: GXKR2013DE001303

PATIENT
  Age: 76 Year
  Sex: Female

DRUGS (1)
  1. RANITIC [Suspect]
     Route: 048

REACTIONS (2)
  - Syncope [Unknown]
  - Dizziness [Unknown]
